FAERS Safety Report 5960678-8 (Version None)
Quarter: 2008Q4

REPORT INFORMATION
  Report Type: 
  Country: None (occurrence: None)
  Receive Date: 20081120
  Receipt Date: 20081111
  Transmission Date: 20090506
  Serious: Yes (Other)
  Sender: FDA-Public Use
  Company Number: US-PFIZER INC-2008095838

PATIENT
  Sex: Female
  Weight: 79.8 kg

DRUGS (13)
  1. CHANTIX [Suspect]
     Indication: SMOKING CESSATION THERAPY
     Dates: start: 20080901
  2. SUCRALFATE [Concomitant]
  3. EFFEXOR [Concomitant]
  4. OMEPRAZOLE [Concomitant]
  5. ACETYLSALICYLIC ACID SRT [Concomitant]
  6. CRESTOR [Concomitant]
  7. LEVOTHYROXINE SODIUM [Concomitant]
  8. METOPROLOL TARTRATE [Concomitant]
  9. FEXOFENADINE [Concomitant]
  10. CYCLOBENZAPRINE HCL [Concomitant]
  11. PLAVIX [Concomitant]
  12. KLONOPIN [Concomitant]
  13. VERAMYST [Concomitant]

REACTIONS (3)
  - CARDIAC SEPTAL DEFECT [None]
  - DYSPNOEA [None]
  - WEIGHT INCREASED [None]
